FAERS Safety Report 24383849 (Version 1)
Quarter: 2024Q4

REPORT INFORMATION
  Report Type: Spontaneous
  Country: US (occurrence: US)
  Receive Date: 20241001
  Receipt Date: 20241001
  Transmission Date: 20250115
  Serious: No
  Sender: DR REDDYS
  Company Number: None

PATIENT
  Age: 23 Year
  Sex: Male

DRUGS (2)
  1. NICOTINE [Suspect]
     Active Substance: NICOTINE
     Indication: Sleep related hypermotor epilepsy
     Route: 062
  2. CENOBAMATE [Concomitant]
     Active Substance: CENOBAMATE
     Indication: Sleep related hypermotor epilepsy

REACTIONS (3)
  - Insomnia [Recovering/Resolving]
  - Palpitations [Recovering/Resolving]
  - Anxiety [Recovering/Resolving]
